FAERS Safety Report 7190840-0 (Version None)
Quarter: 2010Q4

REPORT INFORMATION
  Report Type: 
  Country: None (occurrence: None)
  Receive Date: 20101223
  Receipt Date: 20100806
  Transmission Date: 20110411
  Serious: No
  Sender: FDA-Public Use
  Company Number: US-AMGEN-KDL429635

PATIENT

DRUGS (12)
  1. ENBREL [Suspect]
     Indication: PRODUCT USED FOR UNKNOWN INDICATION
     Dosage: 50 MG, QWK
     Route: 058
  2. DULOXETIME HYDROCHLORIDE [Concomitant]
     Dosage: 20 MG, UNK
  3. MULTI-VITAMINS [Concomitant]
     Dosage: UNK UNK, UNK
  4. FUROSEMIDE [Concomitant]
     Dosage: 20 MG, UNK
  5. METHOTREXATE [Concomitant]
     Dosage: 2.5 MG, UNK
  6. PREDNISONE [Concomitant]
     Dosage: 1 MG, UNK
  7. DIPHENHYDRAMINE HYDROCHLORIDE [Concomitant]
     Dosage: 25 MG, UNK
  8. TRAMADOL HYDROCHLORIDE [Concomitant]
     Dosage: 50 MG, UNK
  9. AMITRIPTYLINE HCL [Concomitant]
     Dosage: 100 MG, UNK
  10. LANSOPRAZOLE [Concomitant]
     Dosage: 30 MG, UNK
  11. OXYCODONE HCL AND ACETAMINOPHEN [Concomitant]
     Dosage: UNK UNK, UNK
  12. CLOPIDOGREL BISULFATE [Concomitant]
     Dosage: 75 MG, UNK

REACTIONS (1)
  - PAIN IN EXTREMITY [None]
